FAERS Safety Report 7444930-5 (Version None)
Quarter: 2011Q2

REPORT INFORMATION
  Report Type: 
  Country: None (occurrence: None)
  Receive Date: 20110429
  Receipt Date: 20110419
  Transmission Date: 20111010
  Serious: Yes (Hospitalization)
  Sender: FDA-Public Use
  Company Number: PHHY2010MX47038

PATIENT
  Sex: Female

DRUGS (7)
  1. ASPIRIN [Concomitant]
  2. ISCOVER [Concomitant]
     Dosage: UNK
  3. INSOGEN PLUS [Concomitant]
  4. LIPITOR [Concomitant]
  5. MICARDIS [Concomitant]
  6. SILDENAFIL CITRATE [Concomitant]
  7. ACLASTA [Suspect]
     Indication: OSTEOPOROSIS
     Dosage: 5 MG, UNK
     Route: 042
     Dates: start: 20090201

REACTIONS (3)
  - DISLOCATION OF VERTEBRA [None]
  - SPINAL COLUMN INJURY [None]
  - SPINAL DISORDER [None]
